FAERS Safety Report 13082003 (Version 1)
Quarter: 2017Q1

REPORT INFORMATION
  Report Type: Spontaneous
  Country: TR (occurrence: TR)
  Receive Date: 20170103
  Receipt Date: 20170103
  Transmission Date: 20170428
  Serious: Yes (Hospitalization, Other)
  Sender: FDA-Public Use
  Company Number: TR-BAYER-2016-247761

PATIENT
  Age: 83 Year
  Sex: Male

DRUGS (3)
  1. CLOPIDOGREL [Suspect]
     Active Substance: CLOPIDOGREL BISULFATE
     Dosage: 300 MG, QD
  2. CLOPIDOGREL [Suspect]
     Active Substance: CLOPIDOGREL BISULFATE
     Dosage: 75 MG, QD
  3. ACETYLSALICYLIC ACID (} 100 MG) [Suspect]
     Active Substance: ASPIRIN
     Dosage: UNK UNK, QD

REACTIONS (5)
  - Haematuria [Unknown]
  - International normalised ratio increased [Recovering/Resolving]
  - Labelled drug-drug interaction medication error [None]
  - Drug administration error [None]
  - Bladder neoplasm [Not Recovered/Not Resolved]
